FAERS Safety Report 5128083-4 (Version None)
Quarter: 2006Q4

REPORT INFORMATION
  Report Type: 
  Country: None (occurrence: None)
  Receive Date: 20061010
  Receipt Date: 20061003
  Transmission Date: 20070319
  Serious: Yes (Hospitalization, Other)
  Sender: FDA-Public Use
  Company Number: HQWYE148706MAR06

PATIENT
  Age: 20 Year
  Sex: Male

DRUGS (13)
  1. RAPAMUNE [Suspect]
     Indication: PROPHYLAXIS AGAINST TRANSPLANT REJECTION
     Dosage: 6; 6; 8 MG 1 X PER 1 DAY
     Route: 048
     Dates: start: 20051226, end: 20060202
  2. RAPAMUNE [Suspect]
     Indication: PROPHYLAXIS AGAINST TRANSPLANT REJECTION
     Dosage: 6; 6; 8 MG 1 X PER 1 DAY
     Route: 048
     Dates: start: 20060203, end: 20060212
  3. RAPAMUNE [Suspect]
     Indication: PROPHYLAXIS AGAINST TRANSPLANT REJECTION
     Dosage: 6; 6; 8 MG 1 X PER 1 DAY
     Route: 048
     Dates: start: 20060213, end: 20060306
  4. RAPAMUNE [Suspect]
     Indication: PROPHYLAXIS AGAINST TRANSPLANT REJECTION
     Dosage: 6; 6; 8 MG 1 X PER 1 DAY
     Route: 048
     Dates: start: 20060316, end: 20060331
  5. MYCOPHENOLATE MOFETIL (MYCOPHENOLATE) [Suspect]
  6. MYCOPHENOLATE MOFETIL [Concomitant]
  7. PREDNISOLONE [Concomitant]
  8. ASPIRIN [Concomitant]
  9. RANITIDINE [Concomitant]
  10. FUROSEMIDE [Concomitant]
  11. SULFAMETHOXAZOLE + TRIMETHOPRIM [Concomitant]
  12. DOXAZOSIN (DOXAZOSIN) [Concomitant]
  13. UNSPECIFIED NUTRITIONAL SUPPLEMENT (UNSPECIFIED NUTRITIONAL SUPPLEMENT [Concomitant]

REACTIONS (1)
  - KIDNEY TRANSPLANT REJECTION [None]
